FAERS Safety Report 10356062 (Version 1)
Quarter: 2014Q3

REPORT INFORMATION
  Report Type: Spontaneous
  Country: US (occurrence: US)
  Receive Date: 20140801
  Receipt Date: 20140801
  Transmission Date: 20150326
  Serious: No
  Sender: FDA-Public Use
  Company Number: US-BIOGENIDEC-2014BI074802

PATIENT
  Sex: Female

DRUGS (1)
  1. AVONEX [Suspect]
     Active Substance: INTERFERON BETA-1A
     Indication: MULTIPLE SCLEROSIS
     Route: 030
     Dates: start: 19991201

REACTIONS (8)
  - Body fat disorder [Unknown]
  - Drug administered at inappropriate site [Unknown]
  - Injection site erythema [Recovered/Resolved]
  - Injection site bruising [Unknown]
  - Injection site reaction [Unknown]
  - Erythema [Unknown]
  - Scar [Unknown]
  - Injection site scar [Unknown]
